FAERS Safety Report 10067887 (Version 1)
Quarter: 2014Q2

REPORT INFORMATION
  Report Type: Report from Study
  Country: HU (occurrence: HU)
  Receive Date: 20140409
  Receipt Date: 20140409
  Transmission Date: 20141212
  Serious: Yes (Other)
  Sender: FDA-Public Use
  Company Number: HU-BRISTOL-MYERS SQUIBB COMPANY-20583811

PATIENT
  Age: 64 Year
  Sex: Female

DRUGS (4)
  1. SPRYCEL (CML) TABS 100 MG [Suspect]
     Indication: CHRONIC MYELOID LEUKAEMIA
     Dosage: LAST DATE:05MAR2014(INTERUPPTED ON 06-MAR-14)
     Route: 048
     Dates: start: 20120115
  2. AMLOZEK [Concomitant]
     Indication: HYPERTENSION
  3. BETALOC ZOK [Concomitant]
     Indication: HYPERTENSION
  4. CO-PRENESSA [Concomitant]
     Indication: HYPERTENSION
     Dosage: 1DF=4/125 MG

REACTIONS (2)
  - Pleural effusion [Recovered/Resolved]
  - Renal disorder [Unknown]
